FAERS Safety Report 18152541 (Version 1)
Quarter: 2020Q3

REPORT INFORMATION
  Report Type: Spontaneous
  Country: TR (occurrence: TR)
  Receive Date: 20200814
  Receipt Date: 20200814
  Transmission Date: 20201103
  Serious: Yes (Other)
  Sender: FDA-Public Use
  Company Number: TR-PURDUE-USA-2020-0162145

PATIENT
  Age: 6 Year
  Sex: Female

DRUGS (7)
  1. BENZYLPENICILLIN [Concomitant]
     Active Substance: PENICILLIN G
     Indication: RHEUMATIC FEVER
  2. HALOPERIDOL. [Concomitant]
     Active Substance: HALOPERIDOL
     Indication: RHEUMATIC FEVER
  3. NON?PMN METHYLPHENIDATE HYDROCHLORIDE [Suspect]
     Active Substance: METHYLPHENIDATE HYDROCHLORIDE
     Indication: ATTENTION DEFICIT HYPERACTIVITY DISORDER
     Dosage: 18 MG, DAILY
     Route: 048
  4. HALOPERIDOL. [Concomitant]
     Active Substance: HALOPERIDOL
     Indication: SYDENHAM^S CHOREA
     Dosage: 1.5 MG, DAILY
  5. BENZYLPENICILLIN [Concomitant]
     Active Substance: PENICILLIN G
     Indication: SYDENHAM^S CHOREA
     Dosage: 1200000 IU, UNK (EVERY 3 WEEKS)
  6. VALPROATE [Concomitant]
     Active Substance: VALPROIC ACID
     Indication: SYDENHAM^S CHOREA
     Dosage: 500 MG, DAILY
  7. VALPROATE [Concomitant]
     Active Substance: VALPROIC ACID
     Indication: RHEUMATIC FEVER

REACTIONS (1)
  - Chorea [Recovering/Resolving]
